FAERS Safety Report 6046913-9 (Version None)
Quarter: 2009Q1

REPORT INFORMATION
  Report Type: 
  Country: None (occurrence: None)
  Receive Date: 20090122
  Receipt Date: 20090116
  Transmission Date: 20090719
  Serious: Yes (Hospitalization)
  Sender: FDA-Public Use
  Company Number: US-ABBOTT-09P-163-0498327-00

PATIENT
  Sex: Female
  Weight: 79.45 kg

DRUGS (14)
  1. HUMIRA [Suspect]
     Indication: CROHN'S DISEASE
     Route: 050
     Dates: start: 20080429, end: 20081126
  2. VITAMIN TAB [Concomitant]
     Indication: DRUG USE FOR UNKNOWN INDICATION
     Route: 048
     Dates: start: 20080429, end: 20081223
  3. COLAZAL [Concomitant]
     Indication: CROHN'S DISEASE
     Route: 048
     Dates: start: 20080429, end: 20081223
  4. ACIPHEX [Concomitant]
     Indication: GASTROOESOPHAGEAL REFLUX DISEASE
     Route: 048
     Dates: start: 20080429, end: 20081223
  5. TYLENOL (CAPLET) [Concomitant]
     Indication: DRUG USE FOR UNKNOWN INDICATION
     Route: 048
     Dates: start: 20080429, end: 20080529
  6. TUMS [Concomitant]
     Indication: DYSPEPSIA
     Dosage: 2-4 TUMS
     Route: 048
     Dates: start: 20080429, end: 20080715
  7. ASPIRIN [Concomitant]
     Indication: PROPHYLAXIS
     Route: 048
     Dates: start: 20080429, end: 20080625
  8. ASPIRIN [Concomitant]
     Indication: BLOOD DISORDER
  9. FOLIC ACID [Concomitant]
     Indication: VITAMIN SUPPLEMENTATION
     Route: 048
     Dates: start: 20080626, end: 20081001
  10. ZANTAC [Concomitant]
     Indication: DYSPEPSIA
     Route: 048
     Dates: start: 20080701, end: 20081223
  11. CLARITIN [Concomitant]
     Indication: HYPERSENSITIVITY
     Route: 048
     Dates: start: 20080918, end: 20081115
  12. PROBIOTICS [Concomitant]
     Indication: DRUG USE FOR UNKNOWN INDICATION
     Route: 048
     Dates: start: 20080422, end: 20080715
  13. AMBIEN [Concomitant]
     Indication: INSOMNIA
     Route: 048
     Dates: start: 20081103, end: 20081223
  14. FLU VACCINE [Concomitant]
     Indication: DRUG USE FOR UNKNOWN INDICATION
     Route: 050
     Dates: start: 20081030, end: 20081030

REACTIONS (2)
  - HYPERTENSION [None]
  - PREMATURE LABOUR [None]
